FAERS Safety Report 4323700-0 (Version None)
Quarter: 2004Q1

REPORT INFORMATION
  Report Type: 
  Country: None (occurrence: None)
  Receive Date: 20040324
  Receipt Date: 20040324
  Transmission Date: 20041129
  Serious: Yes (Hospitalization)
  Sender: FDA-Public Use
  Company Number: None

PATIENT
  Age: 19 Year
  Sex: Female

DRUGS (1)
  1. TRAMADOL HCL [Suspect]
     Indication: HEADACHE
     Dosage: 50 MG ONCE PO
     Route: 048
     Dates: start: 20040302

REACTIONS (5)
  - ANXIETY [None]
  - CONFUSIONAL STATE [None]
  - HYPERVENTILATION [None]
  - MENTAL STATUS CHANGES [None]
  - TACHYCARDIA [None]
